FAERS Safety Report 7377426-X (Version None)
Quarter: 2011Q1

REPORT INFORMATION
  Report Type: 
  Country: None (occurrence: None)
  Receive Date: 20110315
  Receipt Date: 20110303
  Transmission Date: 20110831
  Serious: Yes (Other)
  Sender: FDA-Public Use
  Company Number: 028657

PATIENT
  Sex: Male
  Weight: 66.8 kg

DRUGS (3)
  1. CIMZIA [Suspect]
     Indication: CROHN'S DISEASE
     Dosage: (2 SHOTS SUBCUTANEOUS), (INDUCTION DOSE SUBCUTANEOUS)
     Route: 058
     Dates: start: 20101101
  2. CIMZIA [Suspect]
     Indication: CROHN'S DISEASE
     Dosage: (2 SHOTS SUBCUTANEOUS), (INDUCTION DOSE SUBCUTANEOUS)
     Route: 058
     Dates: start: 20101201
  3. MORPHINE [Concomitant]

REACTIONS (4)
  - KIDNEY INFECTION [None]
  - POLLAKIURIA [None]
  - FATIGUE [None]
  - NEPHROLITHIASIS [None]
